FAERS Safety Report 16270006 (Version 1)
Quarter: 2019Q2

REPORT INFORMATION
  Report Type: Spontaneous
  Country: DE (occurrence: DE)
  Receive Date: 20190503
  Receipt Date: 20190503
  Transmission Date: 20190711
  Serious: Yes (Hospitalization)
  Sender: FDA-Public Use
  Company Number: DE-TEVA-2019-DE-1044250

PATIENT
  Age: 47 Year
  Sex: Female

DRUGS (3)
  1. CANDESARTAN 16 MG [Concomitant]
     Active Substance: CANDESARTAN
     Indication: HYPERTENSION
     Dates: start: 2016
  2. BISODIPIN [Concomitant]
     Indication: HYPERTENSION
     Dates: start: 2016, end: 2019
  3. AZITHROMYCIN-RATIOPHARM 250MG [Suspect]
     Active Substance: AZITHROMYCIN ANHYDROUS
     Indication: RESPIRATORY TRACT INFECTION
     Route: 048
     Dates: start: 20190304, end: 20190304

REACTIONS (7)
  - Nausea [Recovering/Resolving]
  - Jaundice [Recovering/Resolving]
  - Coagulopathy [Recovering/Resolving]
  - Hepatitis toxic [Recovering/Resolving]
  - Subacute hepatic failure [Recovering/Resolving]
  - Cardiovascular disorder [Recovering/Resolving]
  - Dizziness [Recovering/Resolving]

NARRATIVE: CASE EVENT DATE: 20190304
